FAERS Safety Report 7654152-0 (Version None)
Quarter: 2011Q3

REPORT INFORMATION
  Report Type: 
  Country: None (occurrence: None)
  Receive Date: 20110803
  Receipt Date: 20110729
  Transmission Date: 20111222
  Serious: Yes (Death)
  Sender: FDA-Public Use
  Company Number: PHHY2011US69055

PATIENT
  Sex: Male
  Weight: 70.295 kg

DRUGS (1)
  1. EXJADE [Suspect]
     Indication: ACUTE MYELOID LEUKAEMIA
     Dosage: 1500 MG, DAILY
     Route: 048
     Dates: start: 20110114

REACTIONS (1)
  - DEATH [None]
